FAERS Safety Report 5275552-2 (Version None)
Quarter: 2007Q1

REPORT INFORMATION
  Report Type: 
  Country: None (occurrence: None)
  Receive Date: 20061213
  Receipt Date: 20051003
  Transmission Date: 20070707
  Serious: Yes (Hospitalization)
  Sender: FDA-Public Use
  Company Number: 2005UW14797

PATIENT
  Age: 16 Year
  Sex: Female
  Weight: 73.481 kg

DRUGS (6)
  1. SEROQUEL [Suspect]
     Indication: BIPOLAR DISORDER
     Dosage: 50 MG HS; PO
     Route: 048
     Dates: start: 20050929
  2. SEROQUEL [Suspect]
     Indication: BIPOLAR DISORDER
     Dosage: 100 MG HS; PO
     Route: 048
     Dates: start: 20051001
  3. AMOXICILLIN [Concomitant]
  4. PEPCID [Concomitant]
  5. PROZAC [Concomitant]
  6. MOTRIN [Concomitant]

REACTIONS (2)
  - OVERDOSE [None]
  - SNORING [None]
